FAERS Safety Report 10442147 (Version 1)
Quarter: 2014Q3

REPORT INFORMATION
  Report Type: Spontaneous
  Country: JP (occurrence: JP)
  Receive Date: 20140909
  Receipt Date: 20140909
  Transmission Date: 20150326
  Serious: Yes (Other)
  Sender: FDA-Public Use
  Company Number: JP-JNJFOC-20140903001

PATIENT
  Age: 82 Year
  Sex: Female

DRUGS (4)
  1. LYRICA [Concomitant]
     Active Substance: PREGABALIN
     Route: 048
  2. NEUROTROPIN [Concomitant]
     Active Substance: NEUROTROPIN
     Route: 065
  3. REMINYL [Suspect]
     Active Substance: GALANTAMINE
     Indication: DEMENTIA ALZHEIMER^S TYPE
     Route: 048
     Dates: start: 20140731, end: 20140830
  4. TEGRETOL [Concomitant]
     Active Substance: CARBAMAZEPINE
     Route: 048
     Dates: end: 20140821

REACTIONS (2)
  - Rash generalised [Unknown]
  - Stomatitis [Unknown]

NARRATIVE: CASE EVENT DATE: 20140830
